FAERS Safety Report 20432084 (Version 2)
Quarter: 2022Q1

REPORT INFORMATION
  Report Type: Other
  Country: IR (occurrence: None)
  Receive Date: 20220204
  Receipt Date: 20220217
  Transmission Date: 20220424
  Serious: Yes (Other)
  Sender: FDA-Public Use
  Company Number: IR-ROCHE-3017956

PATIENT
  Age: 44 Year
  Sex: Female

DRUGS (4)
  1. BEVACIZUMAB [Suspect]
     Active Substance: BEVACIZUMAB
     Indication: Diabetic retinopathy
     Dosage: 100 MG/4 ML EACH VIAL WAS USED FOR 20 INJECTIONS
     Route: 050
  2. POVIDONE-IODINE [Concomitant]
     Active Substance: POVIDONE-IODINE
  3. TETRACAINE [Concomitant]
     Active Substance: TETRACAINE
  4. PREDNISOLONE [Concomitant]
     Active Substance: PREDNISOLONE
     Dosage: 24 H AFTER PPV AND CONTINUED FOR 10 DAYS.

REACTIONS (4)
  - Endophthalmitis [Unknown]
  - Suspected transmission of an infectious agent via product [Unknown]
  - Off label use [Unknown]
  - Off label use [Unknown]
